FAERS Safety Report 8505519-X (Version None)
Quarter: 2012Q3

REPORT INFORMATION
  Report Type: 
  Country: None (occurrence: None)
  Receive Date: 20120712
  Receipt Date: 20120702
  Transmission Date: 20120928
  Serious: Yes (Life-Threatening)
  Sender: FDA-Public Use
  Company Number: GB-TEVA-345961ISR

PATIENT
  Age: 34 Year
  Sex: Male

DRUGS (7)
  1. RISPERIDONE [Suspect]
     Indication: SCHIZOPHRENIA
     Dosage: STARTED APPROXIMATELY TWO TO THREE WEEKS PRIOR TO ADMISSION.
     Route: 048
     Dates: start: 20120528
  2. TETRALYSAL [Concomitant]
     Indication: ACNE
     Dosage: LONG TERM.
     Route: 048
  3. OLANZAPINE [Concomitant]
     Indication: SCHIZOPHRENIA
     Dosage: PRESCRIBED PRIOR TO ARIPIPRAZOLE.STOPPED DUE TO PERCEIVED LACK OF EFFICACY AND FEAR OF WEIGHT GAIN
     Route: 048
     Dates: start: 20120123, end: 20120325
  4. NOZINAN [Concomitant]
     Dosage: LONG TERM.
     Route: 048
  5. ALBUTEROL SULATE [Concomitant]
     Indication: ASTHMA
     Dosage: ONE TO TWO PUFFS AS REQUIRED.   LONG TERM FOR MILD, WELL CONTROLLED ASTHMA.
     Route: 055
  6. ARIPIPRAZOLE [Concomitant]
     Indication: SCHIZOPHRENIA
     Dosage: PRESCRIBED FOR 2 MONTHS PRIOR TO RISPERIDONE. STOPPED DUE TO PERCEIVED LACK OF EFFICACY.
     Route: 048
     Dates: start: 20120326, end: 20120527
  7. IBUPROFEN [Concomitant]
     Indication: MYALGIA
     Dosage: 200MG - 400MG AS NECESSARY.  PATIENT SELF-MEDICATED FOR PAIN ON A REGULAR BASIS. WITHDRAWN
     Route: 048

REACTIONS (1)
  - PULMONARY EMBOLISM [None]
